FAERS Safety Report 6773509-3 (Version None)
Quarter: 2010Q2

REPORT INFORMATION
  Report Type: 
  Country: None (occurrence: None)
  Receive Date: 20100616
  Receipt Date: 20100312
  Transmission Date: 20101027
  Serious: Yes (Other)
  Sender: FDA-Public Use
  Company Number: US-ABBOTT-10P-163-0632074-00

PATIENT
  Sex: Male
  Weight: 81.72 kg

DRUGS (11)
  1. TRILIPIX [Suspect]
     Indication: BLOOD TRIGLYCERIDES INCREASED
     Route: 048
     Dates: start: 20090101
  2. METFORMIN [Suspect]
     Indication: TYPE 2 DIABETES MELLITUS
     Dosage: UNKNOWN DOSE
     Dates: end: 20090901
  3. LISINOPRIL [Concomitant]
     Indication: HYPERTENSION
     Route: 048
     Dates: start: 20090101
  4. PRAVASTATIN [Concomitant]
     Indication: BLOOD TRIGLYCERIDES INCREASED
  5. INSULIN [Concomitant]
     Indication: TYPE 2 DIABETES MELLITUS
     Route: 058
     Dates: start: 20090901
  6. ALLOPURINOL [Concomitant]
     Indication: GOUT
     Route: 048
  7. XANAX [Concomitant]
     Indication: INSOMNIA
  8. CELEBREX [Concomitant]
     Indication: GOUT
  9. LOVAZA [Concomitant]
     Indication: DRUG USE FOR UNKNOWN INDICATION
     Route: 048
  10. VITAMIN B6 [Concomitant]
     Indication: DRUG USE FOR UNKNOWN INDICATION
     Route: 048
  11. MAGNESIUM [Concomitant]
     Indication: DRUG USE FOR UNKNOWN INDICATION
     Route: 048

REACTIONS (4)
  - BLOOD CREATININE INCREASED [None]
  - GLOMERULAR FILTRATION RATE ABNORMAL [None]
  - MUSCULAR WEAKNESS [None]
  - NEPHROPATHY [None]
